FAERS Safety Report 13564053 (Version 1)
Quarter: 2017Q2

REPORT INFORMATION
  Report Type: Spontaneous
  Country: US (occurrence: US)
  Receive Date: 20170519
  Receipt Date: 20170519
  Transmission Date: 20170830
  Serious: No
  Sender: FDA-Public Use
  Company Number: US-GLAXOSMITHKLINE-US2017070990

PATIENT
  Age: 52 Year
  Sex: Female

DRUGS (2)
  1. FLONASE [Suspect]
     Active Substance: FLUTICASONE PROPIONATE
     Indication: SEASONAL ALLERGY
  2. FLONASE [Suspect]
     Active Substance: FLUTICASONE PROPIONATE
     Indication: HYPERSENSITIVITY
     Dosage: 1 DF, QD
     Dates: start: 20170424, end: 20170508

REACTIONS (9)
  - Rhinorrhoea [Unknown]
  - Pyrexia [Unknown]
  - Lacrimation increased [Unknown]
  - Ageusia [Not Recovered/Not Resolved]
  - Cough [Unknown]
  - Hypersensitivity [Unknown]
  - Sneezing [Unknown]
  - Viral upper respiratory tract infection [Unknown]
  - Anosmia [Not Recovered/Not Resolved]

NARRATIVE: CASE EVENT DATE: 20170505
